FAERS Safety Report 4680063-9 (Version None)
Quarter: 2005Q2

REPORT INFORMATION
  Report Type: 
  Country: None (occurrence: None)
  Receive Date: 20050602
  Receipt Date: 20050422
  Transmission Date: 20051028
  Serious: Yes (Other)
  Sender: FDA-Public Use
  Company Number: BR-BRISTOL-MYERS SQUIBB COMPANY-12950770

PATIENT
  Age: 61 Year
  Sex: Female

DRUGS (1)
  1. CEFEPIME HCL [Suspect]
     Indication: FEBRILE NEUTROPENIA

REACTIONS (7)
  - COMA [None]
  - DISORIENTATION [None]
  - ELECTROENCEPHALOGRAM ABNORMAL [None]
  - MYOCLONUS [None]
  - RENAL FAILURE [None]
  - STUPOR [None]
  - TREMOR [None]
